FAERS Safety Report 5604416-7 (Version None)
Quarter: 2008Q1

REPORT INFORMATION
  Report Type: 
  Country: None (occurrence: None)
  Receive Date: 20080128
  Receipt Date: 20080114
  Transmission Date: 20080703
  Serious: Yes (Other)
  Sender: FDA-Public Use
  Company Number: US-ELI_LILLY_AND_COMPANY-US200801002615

PATIENT
  Age: 83 Year
  Sex: Female

DRUGS (1)
  1. CYMBALTA [Suspect]
     Indication: PAIN
     Dosage: 90 MG, DAILY (1/D)
     Dates: start: 20070101

REACTIONS (1)
  - NEOPLASM MALIGNANT [None]
